FAERS Safety Report 7861838-1 (Version None)
Quarter: 2011Q4

REPORT INFORMATION
  Report Type: 
  Country: None (occurrence: None)
  Receive Date: 20111027
  Receipt Date: 20101117
  Transmission Date: 20120403
  Serious: No
  Sender: FDA-Public Use
  Company Number: US-AMGEN-USASP2010005342

PATIENT
  Age: 51 Year
  Sex: Male

DRUGS (5)
  1. ENBREL [Suspect]
     Indication: PRODUCT USED FOR UNKNOWN INDICATION
     Dosage: 50 MG, QWK
  2. LISINOPRIL [Concomitant]
     Dosage: 2.5 MG, UNK
  3. CYMBALTA [Concomitant]
     Dosage: 50 MG, UNK
  4. MULTIVITAMIN                       /00097801/ [Concomitant]
  5. SIMVASTATIN [Concomitant]
     Dosage: 10 MG, UNK

REACTIONS (1)
  - TREATMENT FAILURE [None]
